FAERS Safety Report 6497895-7 (Version None)
Quarter: 2009Q4

REPORT INFORMATION
  Report Type: 
  Country: None (occurrence: None)
  Receive Date: 20091215
  Receipt Date: 20091204
  Transmission Date: 20100525
  Serious: Yes (Hospitalization, Other)
  Sender: FDA-Public Use
  Company Number: DE-NOVOPROD-283171

PATIENT
  Age: 77 Year
  Sex: Female
  Weight: 66 kg

DRUGS (10)
  1. NOVONORM [Suspect]
     Indication: TYPE 2 DIABETES MELLITUS
     Dosage: 2 MG, TID
     Route: 048
     Dates: start: 20080701, end: 20080716
  2. NOVONORM [Suspect]
     Dosage: UNK
     Route: 048
     Dates: end: 20080716
  3. DELIX                              /00885601/ [Suspect]
     Indication: DRUG USE FOR UNKNOWN INDICATION
     Dosage: 2.5 MG, QD
     Route: 048
     Dates: end: 20080716
  4. DIURAPID [Concomitant]
     Indication: DRUG USE FOR UNKNOWN INDICATION
     Dosage: 40 MG, QD
     Route: 048
     Dates: end: 20080716
  5. LEVEMIR [Concomitant]
     Dosage: 16 UNK, UNK
     Route: 058
     Dates: end: 20080801
  6. ASPIRIN [Concomitant]
     Dosage: 100 MG, QD
     Route: 048
     Dates: end: 20080716
  7. CONCOR                             /00802601/ [Concomitant]
     Dosage: 5 MG, QD
     Route: 048
  8. OMEPRAZOL                          /00661201/ [Concomitant]
     Dosage: 20 MG, QD
     Route: 048
     Dates: start: 20040101, end: 20080716
  9. SIMVASTATIN [Concomitant]
     Dosage: 20 MG, QD
     Route: 048
     Dates: start: 20040101, end: 20080715
  10. VITAMINE B12 AGUETTANT [Concomitant]
     Dosage: 10 UG, QD
     Route: 048
     Dates: end: 20080716

REACTIONS (8)
  - BLOOD GLUCOSE INCREASED [None]
  - HAEMATOCRIT DECREASED [None]
  - HAEMODIALYSIS [None]
  - HAEMOGLOBIN DECREASED [None]
  - NAUSEA [None]
  - RENAL FAILURE [None]
  - VOMITING [None]
  - WHITE BLOOD CELL COUNT INCREASED [None]
